FAERS Safety Report 25836566 (Version 1)
Quarter: 2025Q3

REPORT INFORMATION
  Report Type: Spontaneous
  Country: US (occurrence: None)
  Receive Date: 20250923
  Receipt Date: 20250923
  Transmission Date: 20251021
  Serious: Yes (Other)
  Sender: FDA-CTU
  Company Number: None

PATIENT
  Age: 34 Year
  Sex: Male
  Weight: 103.5 kg

DRUGS (1)
  1. HERBALS [Suspect]
     Active Substance: HERBALS

REACTIONS (3)
  - Substance use [None]
  - Product use in unapproved indication [None]
  - Drug dependence [None]

NARRATIVE: CASE EVENT DATE: 20250801
